FAERS Safety Report 15459267 (Version 1)
Quarter: 2018Q4

REPORT INFORMATION
  Report Type: Spontaneous
  Country: US (occurrence: US)
  Receive Date: 20181001
  Receipt Date: 20181001
  Transmission Date: 20190204
  Serious: Yes (Hospitalization)
  Sender: FDA-Public Use
  Company Number: None

PATIENT
  Sex: Female

DRUGS (5)
  1. IMATINIB. [Suspect]
     Active Substance: IMATINIB MESYLATE
     Indication: MALIGNANT CONNECTIVE TISSUE NEOPLASM
     Route: 048
     Dates: start: 20160407
  2. POTASSIUM 75MG [Concomitant]
  3. RECLAST 5/100ML [Concomitant]
  4. LASIX 40MG [Concomitant]
  5. CLARITIN-D 5-120MG [Concomitant]

REACTIONS (1)
  - Eye operation [None]
